FAERS Safety Report 21989479 (Version 1)
Quarter: 2023Q1

REPORT INFORMATION
  Report Type: Spontaneous
  Country: RO (occurrence: RO)
  Receive Date: 20230214
  Receipt Date: 20230214
  Transmission Date: 20230418
  Serious: Yes (Hospitalization)
  Sender: FDA-Public Use
  Company Number: None

PATIENT
  Age: 5 Year
  Sex: Female

DRUGS (7)
  1. SANDOSTATIN [Suspect]
     Active Substance: OCTREOTIDE ACETATE
     Indication: Pancreatitis acute
     Dosage: 4 MG/KG, QD (4 MG/KG, QD OF BODY PER DAY)
     Route: 042
     Dates: start: 20221231, end: 20230102
  2. SANDOSTATIN [Suspect]
     Active Substance: OCTREOTIDE ACETATE
  3. SANDOSTATIN [Suspect]
     Active Substance: OCTREOTIDE ACETATE
  4. PANTOPRAZOLE [Concomitant]
     Active Substance: PANTOPRAZOLE
     Indication: Product used for unknown indication
     Dosage: 20 ML, Q24H
     Route: 042
     Dates: start: 20221231, end: 20230113
  5. METAMIZOLE SODIUM [Concomitant]
     Active Substance: METAMIZOLE SODIUM
     Indication: Pain
     Dosage: 0.3 MG/KG, QD (0.3 MG/KG, QD OF BODY PER DAY)
     Route: 042
     Dates: start: 20221230, end: 20230102
  6. AMPICILLIN [Concomitant]
     Active Substance: AMPICILLIN
     Indication: Inflammation
     Dosage: 100 MG/KG, QD (100 MG/KG, QD OF BODY PER DAY)
     Route: 042
     Dates: start: 20221230, end: 20230102
  7. HIDROCORTIZON [Concomitant]
     Indication: Inflammation
     Dosage: 10 MG/KG, QD (10 MG, QD OF BODY PER DAY)
     Route: 042
     Dates: start: 20221231, end: 20230113

REACTIONS (1)
  - Bradycardia [Recovered/Resolved]

NARRATIVE: CASE EVENT DATE: 20230101
